FAERS Safety Report 7569350 (Version 2)
Quarter: 2020Q3

REPORT INFORMATION
  Report Type: Report from Study
  Country: AR (occurrence: AR)
  Receive Date: 20100901
  Receipt Date: 20101025
  Transmission Date: 20201105
  Serious: Yes (Hospitalization)
  Sender: FDA-Public Use
  Company Number: AR-WYE-H17105710

PATIENT
  Age: 58 Year
  Sex: Female
  Weight: 61 kg

DRUGS (8)
  1. INTERFERON ALFA NOS [Suspect]
     Active Substance: INTERFERON ALFA-2A OR INTERFERON ALFA-2B
     Indication: RENAL CELL CARCINOMA
     Route: 058
     Dates: start: 20100809, end: 20100823
  2. PARACETAMOL [Concomitant]
     Active Substance: ACETAMINOPHEN
     Indication: PROPHYLAXIS
     Dosage: UNKNOWN
     Route: 065
     Dates: start: 20100809
  3. OMEPRAZOLE. [Concomitant]
     Active Substance: OMEPRAZOLE
     Indication: GASTRITIS
     Dosage: UNKNOWN
     Route: 065
     Dates: start: 2006
  4. INTERFERON ALFA NOS [Suspect]
     Active Substance: INTERFERON ALFA-2A OR INTERFERON ALFA-2B
     Dosage: 6,000,000 IU, FREQUENCY NOT PROVIDED
     Route: 058
     Dates: start: 20100825
  5. BEVACIZUMAB. [Suspect]
     Active Substance: BEVACIZUMAB
     Indication: RENAL CELL CARCINOMA
     Route: 042
     Dates: start: 20100809, end: 20100823
  6. METHADONE [Concomitant]
     Active Substance: METHADONE HYDROCHLORIDE
     Indication: PAIN
     Dosage: UNKNOWN
     Route: 065
     Dates: start: 201004
  7. ATENOLOL. [Concomitant]
     Active Substance: ATENOLOL
     Indication: HYPERTENSION
     Dosage: UNKNOWN
     Route: 065
     Dates: start: 2004
  8. ENALAPRIL [Concomitant]
     Active Substance: ENALAPRIL
     Indication: HYPERTENSION
     Dosage: UNKNOWN
     Route: 065
     Dates: start: 2004

REACTIONS (6)
  - Performance status decreased [None]
  - Bradyphrenia [None]
  - Confusional state [Recovered/Resolved]
  - Oedema peripheral [None]
  - Dizziness [None]
  - Loss of personal independence in daily activities [None]

NARRATIVE: CASE EVENT DATE: 20100822
